FAERS Safety Report 16940871 (Version 2)
Quarter: 2020Q1

REPORT INFORMATION
  Report Type: Report from Study
  Country: JP (occurrence: JP)
  Receive Date: 20191021
  Receipt Date: 20200128
  Transmission Date: 20200409
  Serious: Yes (Other)
  Sender: FDA-Public Use
  Company Number: JP-ACTELION-A-CH2018-172199

PATIENT
  Age: 79 Year
  Sex: Female

DRUGS (9)
  1. ANPLAG [Concomitant]
     Active Substance: SARPOGRELATE
     Indication: SKIN ULCER
     Dosage: 100 MG, TID
     Route: 048
     Dates: start: 20150108
  2. FUROSEMIDE. [Concomitant]
     Active Substance: FUROSEMIDE
  3. TRACLEER [Suspect]
     Active Substance: BOSENTAN
     Indication: SCLERODERMA ASSOCIATED DIGITAL ULCER
     Dosage: 62.5 MG, BID
     Route: 048
     Dates: start: 20150903
  4. BERASUS [Concomitant]
     Active Substance: BERAPROST SODIUM
     Indication: SKIN ULCER
     Dosage: 180MCG OD, 120MCG OD
     Route: 048
     Dates: start: 20141204
  5. BERASUS [Concomitant]
     Active Substance: BERAPROST SODIUM
     Dosage: 60 MCG, BID
     Route: 048
  6. SALIGREN [Concomitant]
     Indication: SJOGREN^S SYNDROME
     Dosage: 30 MG, TID
     Route: 048
     Dates: start: 20150108
  7. ANPLAG [Concomitant]
     Active Substance: SARPOGRELATE
     Dosage: 100 MG, BID
     Route: 048
  8. SALIGREN [Concomitant]
     Dosage: 30 MG, BID
     Route: 048
  9. JUVELA [Concomitant]
     Active Substance: .ALPHA.-TOCOPHEROL\RETINOL
     Dosage: 200 MG
     Route: 048
     Dates: start: 20150108

REACTIONS (7)
  - Blood alkaline phosphatase abnormal [Recovered/Resolved]
  - Aspartate aminotransferase increased [Recovered/Resolved]
  - Liver disorder [Recovered/Resolved]
  - Alanine aminotransferase increased [Recovered/Resolved]
  - Gamma-glutamyltransferase increased [Recovered/Resolved]
  - Compression fracture [Recovering/Resolving]
  - Cardiac failure [Recovering/Resolving]

NARRATIVE: CASE EVENT DATE: 20151015
